FAERS Safety Report 11854398 (Version 1)
Quarter: 2015Q4

REPORT INFORMATION
  Report Type: Report from Study
  Country: CN (occurrence: CN)
  Receive Date: 20151221
  Receipt Date: 20151221
  Transmission Date: 20160305
  Serious: Yes (Other)
  Sender: FDA-Public Use
  Company Number: CN-ROCHE-1679129

PATIENT

DRUGS (2)
  1. CAPECITABINE. [Suspect]
     Active Substance: CAPECITABINE
     Indication: GASTRIC CANCER
     Dosage: ON DAY 1 ONCE EVERY 12 H, FOR CONSECUTIVE 2 WEEKS, WITH AN INTERVAL OF 1 WEEK
     Route: 048
  2. GLUTAMINE [Suspect]
     Active Substance: GLUTAMINE
     Indication: GASTRIC CANCER
     Dosage: 3 CAPSULES PER TIME, THREE TIMES A DAY
     Route: 048

REACTIONS (9)
  - Renal injury [Unknown]
  - Nausea [Unknown]
  - Diarrhoea [Unknown]
  - Palmar-plantar erythrodysaesthesia syndrome [Unknown]
  - Abdominal pain [Unknown]
  - Anaemia [Unknown]
  - Hepatic function abnormal [Unknown]
  - White blood cell count decreased [Unknown]
  - Vomiting [Unknown]
